FAERS Safety Report 21858618 (Version 2)
Quarter: 2023Q1

REPORT INFORMATION
  Report Type: Spontaneous
  Country: US (occurrence: None)
  Receive Date: 20230113
  Receipt Date: 20230120
  Transmission Date: 20230418
  Serious: Yes (Death, Life-Threatening, Hospitalization, Other)
  Sender: FDA-Public Use
  Company Number: US-Hikma Pharmaceuticals USA Inc.-US-H14001-23-00039

PATIENT
  Age: 37 Year
  Sex: Male
  Weight: 41 kg

DRUGS (17)
  1. MIDAZOLAM [Suspect]
     Active Substance: MIDAZOLAM
     Indication: Sedation
     Route: 042
  2. MIDAZOLAM [Suspect]
     Active Substance: MIDAZOLAM
     Route: 042
  3. MIDAZOLAM [Suspect]
     Active Substance: MIDAZOLAM
     Route: 042
  4. PROPOFOL [Suspect]
     Active Substance: PROPOFOL
     Indication: Product used for unknown indication
     Dosage: SMALL DOSES
     Route: 065
  5. PROPOFOL [Suspect]
     Active Substance: PROPOFOL
     Route: 065
  6. PROPOFOL [Suspect]
     Active Substance: PROPOFOL
     Route: 065
  7. SUCCINYLCHOLINE [Suspect]
     Active Substance: SUCCINYLCHOLINE
     Indication: Product used for unknown indication
     Route: 065
  8. EPINEPHRINE\LIDOCAINE [Suspect]
     Active Substance: EPINEPHRINE\LIDOCAINE
     Indication: Dental local anaesthesia
     Dosage: 1.8 ML OF 2% LIDOCAINE WITH 1:100000 EPINEPHRINE
     Route: 004
  9. EPINEPHRINE\LIDOCAINE [Suspect]
     Active Substance: EPINEPHRINE\LIDOCAINE
     Indication: Dental local anaesthesia
     Dosage: TOTAL OF 3.6 ML OF 2% LIDOCAINE (72 MG) WITH 1:100 000 EPINEPHRINE (36 MCG)
     Route: 004
  10. DENTA 5000 PLUS [Suspect]
     Active Substance: SODIUM FLUORIDE
     Indication: Product used for unknown indication
     Dosage: UNKNOWN
     Route: 065
  11. ARTICAINE\EPINEPHRINE [Suspect]
     Active Substance: ARTICAINE\EPINEPHRINE
     Indication: Dental local anaesthesia
     Dosage: 3.6 ML OF 4% ARTICAINE (144 MG) WITH 1:100 000 EPINEPHRINE (36 MCG).
     Route: 004
  12. ARTICAINE\EPINEPHRINE [Suspect]
     Active Substance: ARTICAINE\EPINEPHRINE
     Indication: Dental local anaesthesia
     Dosage: 1.8 ML OF 4% ARTICAINE (72 MG) WITH 1:100 000 EPINEPHRINE (18 MCGG)
     Route: 004
  13. ARTICAINE\EPINEPHRINE [Suspect]
     Active Substance: ARTICAINE\EPINEPHRINE
     Dosage: ONE FINAL SUPPLEMENTAL INJECTION OF 1.8 ML OF 4% ARTICAINE (72 MG) WITH 1:100 000 EPINEPHRINE (18 MC
     Route: 004
  14. DOCUSATE [Concomitant]
     Active Substance: DOCUSATE
     Indication: Product used for unknown indication
     Dosage: UNKNOWN
     Route: 065
  15. SALINE [Concomitant]
     Active Substance: SODIUM CHLORIDE
     Indication: Product used for unknown indication
     Route: 042
  16. OXYGEN [Concomitant]
     Active Substance: OXYGEN
     Indication: Oxygen therapy
     Route: 045
  17. CASSIA [Concomitant]
     Indication: Product used for unknown indication
     Dosage: UNKNOWN
     Route: 065

REACTIONS (13)
  - Hypoxia [Unknown]
  - Myotonic dystrophy [Unknown]
  - Condition aggravated [Unknown]
  - Pneumothorax [Unknown]
  - Arrhythmia [Unknown]
  - Electrocardiogram ST segment elevation [Unknown]
  - Pneumonitis aspiration [Unknown]
  - Pneumonia [Unknown]
  - Craniocerebral injury [Fatal]
  - Cardiac arrest [Recovered/Resolved]
  - Hypersomnia [Unknown]
  - Hyporesponsive to stimuli [Recovering/Resolving]
  - Fall [Fatal]
